FAERS Safety Report 5236862-8 (Version None)
Quarter: 2007Q2

REPORT INFORMATION
  Report Type: 
  Country: None (occurrence: None)
  Receive Date: 20070213
  Receipt Date: 20070205
  Transmission Date: 20071010
  Serious: Yes (Death, Life-Threatening, Hospitalization, Other)
  Sender: FDA-Public Use
  Company Number: JP-JNJFOC-20070103885

PATIENT
  Age: 56 Year
  Sex: Male

DRUGS (8)
  1. ORTHOCLONE OKT3 [Suspect]
     Indication: TRANSPLANT REJECTION
     Route: 065
  2. METHYLPREDNISOLONE 16MG TAB [Concomitant]
     Indication: PROPHYLAXIS AGAINST TRANSPLANT REJECTION
     Route: 042
  3. POLARAMINE [Concomitant]
     Route: 048
  4. IMMUNE GLOBULIN INTRAVENOUS (HUMAN) [Concomitant]
     Route: 065
  5. VOLTAREN [Concomitant]
     Indication: LIVER TRANSPLANT
     Route: 054
  6. CHLORTHALIDONE [Concomitant]
  7. CHLORPHENIRAMINE MALEATE [Concomitant]
     Route: 042
  8. TACROLIMUS [Concomitant]
     Indication: LIVER TRANSPLANT
     Route: 065

REACTIONS (11)
  - BRAIN HERNIATION [None]
  - BRAIN OEDEMA [None]
  - CARDIO-RESPIRATORY ARREST [None]
  - CARDIOGENIC SHOCK [None]
  - ENCEPHALOPATHY [None]
  - HAEMOLYSIS [None]
  - MULTI-ORGAN FAILURE [None]
  - PNEUMONIA [None]
  - RENAL FAILURE ACUTE [None]
  - SUBARACHNOID HAEMORRHAGE [None]
  - VENTRICULAR TACHYCARDIA [None]
